FAERS Safety Report 6273438-8 (Version None)
Quarter: 2009Q3

REPORT INFORMATION
  Report Type: 
  Country: None (occurrence: None)
  Receive Date: 20090720
  Receipt Date: 20090708
  Transmission Date: 20100115
  Serious: Yes (Other)
  Sender: FDA-Public Use
  Company Number: PHEH2009US07334

PATIENT
  Sex: Female

DRUGS (1)
  1. RECLAST [Suspect]

REACTIONS (4)
  - ARTHRALGIA [None]
  - DRY EYE [None]
  - EXERCISE TOLERANCE DECREASED [None]
  - VENTRICULAR EXTRASYSTOLES [None]
